FAERS Safety Report 5765250-0 (Version None)
Quarter: 2008Q2

REPORT INFORMATION
  Report Type: 
  Country: None (occurrence: None)
  Receive Date: 20080605
  Receipt Date: 20080520
  Transmission Date: 20081010
  Serious: Yes (Other)
  Sender: FDA-Public Use
  Company Number: ENDC20080019

PATIENT
  Age: 32 Year
  Sex: Female
  Weight: 86.1834 kg

DRUGS (6)
  1. ENDOCET 10MG/325MG [Suspect]
     Indication: PAIN
     Dosage: 1 TAB 4 TO 6 HOURS, PER ORAL
     Route: 048
     Dates: start: 20080301
  2. XANAX [Concomitant]
  3. CARISOPRODOL [Concomitant]
  4. MAXALT [Concomitant]
  5. RITALIN [Concomitant]
  6. ALBUTEROL [Concomitant]

REACTIONS (8)
  - DEPRESSED MOOD [None]
  - DRUG INEFFECTIVE [None]
  - DRUG WITHDRAWAL SYNDROME [None]
  - FATIGUE [None]
  - INCORRECT DOSE ADMINISTERED [None]
  - INFLUENZA [None]
  - PAIN [None]
  - THERAPEUTIC RESPONSE UNEXPECTED WITH DRUG SUBSTITUTION [None]
